FAERS Safety Report 7328115-9 (Version None)
Quarter: 2011Q1

REPORT INFORMATION
  Report Type: 
  Country: None (occurrence: None)
  Receive Date: 20110303
  Receipt Date: 20110217
  Transmission Date: 20110831
  Serious: Yes (Hospitalization)
  Sender: FDA-Public Use
  Company Number: PHFR2011GB01527

PATIENT
  Age: 41 Year
  Sex: Male

DRUGS (1)
  1. CLOZAPINE [Suspect]
     Dosage: 250MG
     Route: 048
     Dates: start: 20070101

REACTIONS (8)
  - ABDOMINAL PAIN [None]
  - POLYURIA [None]
  - POLYDIPSIA [None]
  - FOLLICULITIS [None]
  - DIABETES MELLITUS [None]
  - VOMITING [None]
  - CONSTIPATION [None]
  - BLOOD GLUCOSE INCREASED [None]
